FAERS Safety Report 9002762 (Version 1)
Quarter: 2013Q1

REPORT INFORMATION
  Report Type: Spontaneous
  Country: US (occurrence: US)
  Receive Date: 20130107
  Receipt Date: 20130107
  Transmission Date: 20140127
  Serious: No
  Sender: FDA-Public Use
  Company Number: US-GLAXOSMITHKLINE-A0999974A

PATIENT
  Age: 59 Year
  Sex: Female

DRUGS (8)
  1. BENLYSTA [Suspect]
     Indication: SYSTEMIC LUPUS ERYTHEMATOSUS
     Route: 042
     Dates: start: 201205
  2. STEROIDS [Concomitant]
  3. DOXEPIN [Concomitant]
  4. RANITIDINE [Concomitant]
  5. TYLENOL [Concomitant]
  6. PAIN MEDICATION [Concomitant]
  7. PAIN MEDICATION [Concomitant]
  8. LORTAB [Concomitant]

REACTIONS (5)
  - Fatigue [Unknown]
  - Headache [Unknown]
  - Neck pain [Unknown]
  - Neck pain [Unknown]
  - Pain [Unknown]
